FAERS Safety Report 4355134-7 (Version None)
Quarter: 2004Q2

REPORT INFORMATION
  Report Type: 
  Country: None (occurrence: None)
  Receive Date: 20040504
  Receipt Date: 20040422
  Transmission Date: 20050107
  Serious: Yes (Hospitalization)
  Sender: FDA-Public Use
  Company Number: 2004210559FR

PATIENT
  Age: 7 Year
  Sex: Male

DRUGS (15)
  1. SOLU-MEDROL [Suspect]
     Dosage: 30 MG, QD, IV
     Route: 042
     Dates: start: 20040223
  2. CLAFORAN [Suspect]
     Dosage: 1 G, TID, IV
     Route: 042
     Dates: start: 20040302, end: 20040318
  3. NARCOZEP (FLUNITRAZEPAM) [Suspect]
     Dosage: 0.56 MG, QD, IV
     Route: 042
     Dates: start: 20040223, end: 20040226
  4. NARCOZEP (FLUNITRAZEPAM) [Suspect]
     Dosage: 0.56 MG, QD, IV
     Route: 042
     Dates: start: 20040302, end: 20040314
  5. THIOPENTAL SODIUM [Suspect]
     Dosage: 56 MG, QD, IV
     Route: 042
     Dates: start: 20040223, end: 20040312
  6. OMEPRAZOLE [Suspect]
     Dosage: 20 MG,QD, ORAL
     Route: 048
     Dates: start: 20040223, end: 20040318
  7. FENTANYL ^DAKOTA PHARM^ (FENTANYL) [Suspect]
     Dosage: 70 MG, QD, IV
     Route: 042
     Dates: start: 20040223, end: 20040323
  8. SECTRAL ^RHONE-POULENC RORER^ [Concomitant]
  9. ASPEGIC 325 [Concomitant]
  10. ENDOXAN [Concomitant]
  11. LASIX [Concomitant]
  12. ORBENIN CAP [Concomitant]
  13. TRANDATE (LABETOLOL HYDROCHLORIDE) [Concomitant]
  14. TEGELINE [Concomitant]
  15. ACETAMINOPHEN [Suspect]
     Dosage: 330MG, QID, IV
     Dates: start: 20040223, end: 20040226

REACTIONS (13)
  - BONE MARROW DEPRESSION [None]
  - C-REACTIVE PROTEIN INCREASED [None]
  - CEREBRAL HAEMORRHAGE [None]
  - COMA [None]
  - DECEREBRATION [None]
  - HYPERTENSION [None]
  - INFLAMMATION [None]
  - LEUKOCYTOSIS [None]
  - LOSS OF CONSCIOUSNESS [None]
  - MIOSIS [None]
  - NEUTROPHIL COUNT INCREASED [None]
  - PANCYTOPENIA [None]
  - PULMONARY CONGESTION [None]
